FAERS Safety Report 21396789 (Version 1)
Quarter: 2022Q3

REPORT INFORMATION
  Report Type: Spontaneous
  Country: US (occurrence: None)
  Receive Date: 20220930
  Receipt Date: 20220930
  Transmission Date: 20221026
  Serious: Yes (Other)
  Sender: FDA-Public Use
  Company Number: US-FARMAPROD-202209-1834

PATIENT
  Sex: Female

DRUGS (13)
  1. OXERVATE [Suspect]
     Active Substance: CENEGERMIN-BKBJ
     Indication: Neurotrophic keratopathy
     Route: 047
     Dates: start: 20220829
  2. LUBRICATING EYE [Concomitant]
     Active Substance: MINERAL OIL\PETROLATUM
     Dosage: 0.3 %-0.4%
  3. RESTASIS [Concomitant]
     Active Substance: CYCLOSPORINE
     Dosage: MULTIDOSE
  4. BIOTIN [Concomitant]
     Active Substance: BIOTIN
  5. CALCIUM 600 D3 plus [Concomitant]
  6. CALCIUM PANTOTHENATE\CYANOCOBALAMIN\NIACINAMIDE\PYRIDOXINE HYDROCHLORI [Concomitant]
     Active Substance: CALCIUM PANTOTHENATE\CYANOCOBALAMIN\NIACINAMIDE\PYRIDOXINE HYDROCHLORIDE\RIBOFLAVIN\THIAMINE MONONIT
     Dosage: 100 TABLET EXTENDED RELEASE
  7. B12 ACTIVE [Concomitant]
  8. LUTEIN [Concomitant]
     Active Substance: LUTEIN
  9. LORAZEPAM [Concomitant]
     Active Substance: LORAZEPAM
  10. NEBIVOLOL [Concomitant]
     Active Substance: NEBIVOLOL
  11. ATORVASTATIN CALCIUM [Concomitant]
     Active Substance: ATORVASTATIN CALCIUM
  12. VENLAFAXINE HCL [Concomitant]
     Active Substance: VENLAFAXINE HYDROCHLORIDE
  13. VELCADE [Concomitant]
     Active Substance: BORTEZOMIB

REACTIONS (3)
  - Knee arthroplasty [Unknown]
  - Eye pain [Not Recovered/Not Resolved]
  - Eye irritation [Unknown]
